FAERS Safety Report 9227062 (Version 1)
Quarter: 2013Q2

REPORT INFORMATION
  Report Type: Spontaneous
  Country: US (occurrence: None)
  Receive Date: 20130410
  Receipt Date: 20130410
  Transmission Date: 20140414
  Serious: No
  Sender: FDA-Public Use
  Company Number: None

PATIENT
  Sex: Female
  Weight: 82.1 kg

DRUGS (3)
  1. ABILIFY [Suspect]
     Indication: DEPRESSION
     Dosage: 10MG DAILY ORAL
     Route: 048
     Dates: start: 20121004
  2. CLONAZEPAM [Concomitant]
     Indication: DEPRESSION
  3. CITALOPRAM [Concomitant]

REACTIONS (2)
  - Dyskinesia [None]
  - Drug level increased [None]
